FAERS Safety Report 8916208 (Version 2)
Quarter: 2012Q4

REPORT INFORMATION
  Report Type: 
  Country: US (occurrence: US)
  Receive Date: 20121120
  Receipt Date: 20121219
  Transmission Date: 20130627
  Serious: Yes (Other)
  Sender: FDA-Public Use
  Company Number: US-ELI_LILLY_AND_COMPANY-US201210005583

PATIENT
  Sex: Female
  Weight: 61.22 kg

DRUGS (3)
  1. CYMBALTA [Suspect]
     Indication: OSTEOARTHRITIS
     Dosage: 30 mg, qd
  2. ASPIRIN [Concomitant]
  3. MOBIC [Concomitant]

REACTIONS (6)
  - Limb operation [Unknown]
  - Somnolence [Recovering/Resolving]
  - Feeling abnormal [Recovering/Resolving]
  - Memory impairment [Recovering/Resolving]
  - Pain [Unknown]
  - Drug ineffective [Unknown]
